FAERS Safety Report 16812976 (Version 1)
Quarter: 2019Q3

REPORT INFORMATION
  Report Type: Other
  Country: US (occurrence: US)
  Receive Date: 20190916
  Receipt Date: 20190916
  Transmission Date: 20191005
  Serious: No
  Sender: FDA-Public Use
  Company Number: US-LEADIANT BIOSCIENCES INC-2018STPI000639

PATIENT
  Sex: Male

DRUGS (8)
  1. MONTELUKAST [Concomitant]
     Active Substance: MONTELUKAST SODIUM
  2. MULTIVITAMIN                       /00097801/ [Concomitant]
     Active Substance: VITAMINS
  3. METOPROLOL. [Concomitant]
     Active Substance: METOPROLOL
  4. GLEOSTINE [Concomitant]
     Active Substance: LOMUSTINE
  5. ATORVASTATIN [Concomitant]
     Active Substance: ATORVASTATIN
  6. RANITIDINE                         /00550802/ [Suspect]
     Active Substance: RANITIDINE
  7. MATULANE [Suspect]
     Active Substance: PROCARBAZINE HYDROCHLORIDE
     Indication: BRAIN NEOPLASM MALIGNANT
     Dosage: 100 MG PO QD ON DAYS 8 - 21 OF EACH 8-WEEK CYCLE
     Route: 048
  8. DILANTIN [Concomitant]
     Active Substance: PHENYTOIN

REACTIONS (2)
  - Diarrhoea [Not Recovered/Not Resolved]
  - Nausea [Not Recovered/Not Resolved]

NARRATIVE: CASE EVENT DATE: 2018
